FAERS Safety Report 8608854-X (Version None)
Quarter: 2012Q3

REPORT INFORMATION
  Report Type: 
  Country: None (occurrence: None)
  Receive Date: 20120821
  Receipt Date: 20120815
  Transmission Date: 20120928
  Serious: Yes (Other)
  Sender: FDA-Public Use
  Company Number: US-PFIZER INC-2012200937

PATIENT
  Age: 64 Year
  Sex: Female
  Weight: 79.4 kg

DRUGS (3)
  1. LYRICA [Suspect]
     Indication: FIBROMYALGIA
     Dosage: 75 MG, 3X/DAY (SINCE 10 YEARS AGO)
     Route: 048
     Dates: end: 20120810
  2. SIMVASTATIN [Concomitant]
     Indication: BLOOD CHOLESTEROL ABNORMAL
     Dosage: 40 MG, DAILY
     Route: 048
  3. LEXAPRO [Concomitant]
     Indication: DEPRESSION
     Dosage: 10 MG, DAILY

REACTIONS (7)
  - PAIN [None]
  - CHEST DISCOMFORT [None]
  - IMPAIRED WORK ABILITY [None]
  - THROAT TIGHTNESS [None]
  - MALAISE [None]
  - OROPHARYNGEAL PAIN [None]
  - FEELING ABNORMAL [None]
